FAERS Safety Report 25084267 (Version 1)
Quarter: 2025Q1

REPORT INFORMATION
  Report Type: Spontaneous
  Country: SG (occurrence: SG)
  Receive Date: 20250317
  Receipt Date: 20250317
  Transmission Date: 20250409
  Serious: Yes (Other)
  Sender: ROCHE
  Company Number: SG-ROCHE-10000225899

PATIENT
  Age: 59 Year
  Sex: Male

DRUGS (1)
  1. ATEZOLIZUMAB [Suspect]
     Active Substance: ATEZOLIZUMAB
     Indication: Product used for unknown indication
     Route: 065

REACTIONS (2)
  - Chest discomfort [Unknown]
  - Hypotension [Unknown]

NARRATIVE: CASE EVENT DATE: 20250117
